FAERS Safety Report 7142856-8 (Version None)
Quarter: 2010Q4

REPORT INFORMATION
  Report Type: 
  Country: None (occurrence: None)
  Receive Date: 20101207
  Receipt Date: 20101124
  Transmission Date: 20110411
  Serious: Yes (Other)
  Sender: FDA-Public Use
  Company Number: GB-MYLANLABS-2010S1021609

PATIENT
  Age: 51 Year
  Sex: Female

DRUGS (3)
  1. FELODIPINE [Suspect]
     Indication: HYPERTENSION
     Route: 048
     Dates: start: 20101006
  2. FELODIPINE [Suspect]
     Route: 048
     Dates: start: 20101015, end: 20101020
  3. FELODIPINE [Suspect]
     Route: 048
     Dates: start: 20100922

REACTIONS (2)
  - OEDEMA MOUTH [None]
  - SWOLLEN TONGUE [None]
